FAERS Safety Report 17036606 (Version 9)
Quarter: 2023Q2

REPORT INFORMATION
  Report Type: Spontaneous
  Country: CA (occurrence: CA)
  Receive Date: 20191115
  Receipt Date: 20230412
  Transmission Date: 20230721
  Serious: Yes (Hospitalization, Other)
  Sender: FDA-Public Use
  Company Number: CA-TAKEDA-2019TUS063972

PATIENT
  Age: 62 Year
  Sex: Female

DRUGS (19)
  1. PANTOPRAZOLE [Suspect]
     Active Substance: PANTOPRAZOLE
     Indication: Gastrooesophageal reflux disease
     Dosage: 40 MILLIGRAM, QD
     Route: 065
  2. ALVESCO [Suspect]
     Active Substance: CICLESONIDE
     Dosage: UNK
     Route: 055
  3. BERINERT [Suspect]
     Active Substance: HUMAN C1-ESTERASE INHIBITOR
     Dosage: 1000 DOSAGE FORM
     Route: 042
  4. BUDESONIDE [Suspect]
     Active Substance: BUDESONIDE
     Dosage: UNK UNK, BID
     Route: 055
  5. BUDESONIDE [Suspect]
     Active Substance: BUDESONIDE
     Dosage: UNK UNK, BID
     Route: 065
  6. IPRATROPIUM [Suspect]
     Active Substance: IPRATROPIUM
     Dosage: 4 DOSAGE FORM, QID
     Route: 055
  7. IPRATROPIUM [Suspect]
     Active Substance: IPRATROPIUM
     Dosage: 2 DOSAGE FORM, QID
     Route: 065
  8. SINGULAIR [Suspect]
     Active Substance: MONTELUKAST SODIUM
     Dosage: UNK
     Route: 065
  9. SPIRIVA [Suspect]
     Active Substance: TIOTROPIUM BROMIDE MONOHYDRATE
     Dosage: UNK
     Route: 065
  10. SYMBICORT [Suspect]
     Active Substance: BUDESONIDE\FORMOTEROL FUMARATE DIHYDRATE
     Dosage: 8 DOSAGE FORM, QD
     Route: 055
  11. SYMBICORT [Suspect]
     Active Substance: BUDESONIDE\FORMOTEROL FUMARATE DIHYDRATE
     Dosage: 8 DOSAGE FORM, QD
     Route: 065
  12. NUCALA [Suspect]
     Active Substance: MEPOLIZUMAB
     Indication: Asthma
     Dosage: 100 MILLIGRAM
     Route: 042
  13. CINRYZE [Suspect]
     Active Substance: HUMAN C1-ESTERASE INHIBITOR
     Dosage: 1000 DOSAGE FORM
     Route: 042
  14. VENTOLIN [Suspect]
     Active Substance: ALBUTEROL SULFATE
     Indication: Wheezing
     Dosage: 100 MICROGRAM
     Route: 055
  15. VENTOLIN [Suspect]
     Active Substance: ALBUTEROL SULFATE
     Indication: Chest discomfort
     Dosage: UNK
     Route: 065
  16. CONESTAT ALFA [Suspect]
     Active Substance: CONESTAT ALFA
     Dosage: 1000 DOSAGE FORM
     Route: 042
  17. CETIRIZINE HYDROCHLORIDE [Suspect]
     Active Substance: CETIRIZINE HYDROCHLORIDE
     Dosage: 10 MILLIGRAM, QD
     Route: 065
  18. VALTREX [Suspect]
     Active Substance: VALACYCLOVIR HYDROCHLORIDE
     Dosage: 500 MILLIGRAM, QD
     Route: 048
  19. ZOPICLONE [Suspect]
     Active Substance: ZOPICLONE
     Dosage: 3.75 MILLIGRAM, QD
     Route: 065

REACTIONS (19)
  - Asthma [Recovering/Resolving]
  - Blood immunoglobulin E increased [Recovering/Resolving]
  - Chest discomfort [Recovering/Resolving]
  - Chronic sinusitis [Recovering/Resolving]
  - Cough [Recovering/Resolving]
  - Dysphonia [Recovering/Resolving]
  - Dyspnoea [Recovering/Resolving]
  - Emotional distress [Recovering/Resolving]
  - Eosinophilia [Recovering/Resolving]
  - Laryngeal stenosis [Recovering/Resolving]
  - Loss of personal independence in daily activities [Recovering/Resolving]
  - Middle insomnia [Recovering/Resolving]
  - Muscle spasms [Recovering/Resolving]
  - Obstructive airways disorder [Recovering/Resolving]
  - Sinus disorder [Recovering/Resolving]
  - Skin lesion [Recovering/Resolving]
  - Vocal cord dysfunction [Recovering/Resolving]
  - Wheezing [Recovering/Resolving]
  - Sleep disorder [Unknown]
